FAERS Safety Report 5660285-0 (Version None)
Quarter: 2008Q1

REPORT INFORMATION
  Report Type: 
  Country: None (occurrence: None)
  Receive Date: 20080214
  Receipt Date: 20071103
  Transmission Date: 20080703
  Serious: No
  Sender: FDA-Public Use
  Company Number: WAES 0712USA00346

PATIENT
  Age: 50 Year
  Sex: Female

DRUGS (11)
  1. ISENTRESS [Suspect]
     Indication: HIV INFECTION
     Dosage: PO
     Route: 048
     Dates: start: 20070523, end: 20070101
  2. BACTRIM [Concomitant]
  3. EPIVIR [Concomitant]
  4. FUZEON [Concomitant]
  5. NORVIR [Concomitant]
  6. PERCOCET [Concomitant]
  7. PREZISTA [Concomitant]
  8. ZITHROMAX [Concomitant]
  9. ALBUTEROL [Concomitant]
  10. ALPRAZOLAM [Concomitant]
  11. METHADONE HYDROCHLORIDE [Concomitant]

REACTIONS (2)
  - ARRHYTHMIA [None]
  - RENAL FAILURE [None]
